FAERS Safety Report 4915766-1 (Version None)
Quarter: 2006Q1

REPORT INFORMATION
  Report Type: 
  Country: None (occurrence: None)
  Receive Date: 20060214
  Receipt Date: 20060127
  Transmission Date: 20060701
  Serious: Yes (Other)
  Sender: FDA-Public Use
  Company Number: US200601005029

PATIENT
  Age: 46 Year
  Sex: Female

DRUGS (1)
  1. EVISTA [Suspect]

REACTIONS (6)
  - ABDOMINAL PAIN UPPER [None]
  - EMBOLISM [None]
  - GASTRIC BYPASS [None]
  - GASTROINTESTINAL DISORDER [None]
  - INTESTINAL INFARCTION [None]
  - SMALL INTESTINE GANGRENE [None]
